FAERS Safety Report 16225215 (Version 1)
Quarter: 2019Q2

REPORT INFORMATION
  Report Type: Spontaneous
  Country: IT (occurrence: IT)
  Receive Date: 20190422
  Receipt Date: 20190422
  Transmission Date: 20190711
  Serious: Yes (Other)
  Sender: FDA-Public Use
  Company Number: IT-MYLANLABS-2019M1038314

PATIENT
  Age: 60 Year
  Sex: Female

DRUGS (3)
  1. BISOPROLOL [Suspect]
     Active Substance: BISOPROLOL
     Indication: HYPERTENSION
     Dosage: UNK
  2. LERCADIP                           /01366401/ [Suspect]
     Active Substance: LERCANIDIPINE
     Indication: HYPERTENSION
     Dosage: 1 DOSAGE FORM, TOTAL
     Route: 048
     Dates: start: 20190306, end: 20190306
  3. LOSARTAN. [Suspect]
     Active Substance: LOSARTAN
     Indication: HYPERTENSION
     Dosage: 1 DOSAGE FORM, TOTAL
     Route: 048
     Dates: start: 20190306, end: 20190306

REACTIONS (6)
  - Feeling abnormal [Recovering/Resolving]
  - Chest discomfort [Recovering/Resolving]
  - Drug ineffective [Recovering/Resolving]
  - Feeling hot [Recovering/Resolving]
  - Agitation [Recovering/Resolving]
  - Tinnitus [Recovering/Resolving]

NARRATIVE: CASE EVENT DATE: 20190306
